FAERS Safety Report 4968423-X (Version None)
Quarter: 2006Q2

REPORT INFORMATION
  Report Type: 
  Country: None (occurrence: None)
  Receive Date: 20060410
  Receipt Date: 20051213
  Transmission Date: 20061013
  Serious: Yes (Death, Hospitalization, Disabling)
  Sender: FDA-Public Use
  Company Number: PL-MERCK-0512POL00007

PATIENT
  Sex: Female

DRUGS (7)
  1. VIOXX [Suspect]
     Route: 048
     Dates: start: 20020529, end: 20020901
  2. VIOXX [Suspect]
     Route: 048
     Dates: start: 20021001, end: 20040801
  3. ENALAPRIL MALEATE [Concomitant]
     Route: 048
     Dates: start: 20020529
  4. MOLSIDOMINE [Concomitant]
     Route: 048
     Dates: start: 20020529
  5. ISOSORBIDE MONONITRATE [Concomitant]
     Route: 048
     Dates: start: 20020529
  6. IRON (UNSPECIFIED) [Concomitant]
     Route: 065
     Dates: start: 20020529
  7. OMEPRAZOLE [Concomitant]
     Route: 048
     Dates: start: 20020529

REACTIONS (23)
  - ANGINA PECTORIS [None]
  - ARRHYTHMIA [None]
  - ATRIAL FIBRILLATION [None]
  - ATRIAL THROMBOSIS [None]
  - BALANCE DISORDER [None]
  - BRONCHITIS CHRONIC [None]
  - CARDIAC FAILURE [None]
  - CARDIOMEGALY [None]
  - CAROTID ARTERY THROMBOSIS [None]
  - CEREBROVASCULAR ACCIDENT [None]
  - DEATH [None]
  - DEPRESSION [None]
  - EPISTAXIS [None]
  - GASTRITIS [None]
  - GASTROINTESTINAL DISORDER [None]
  - GENERAL PHYSICAL HEALTH DETERIORATION [None]
  - HAEMORRHAGE SUBCUTANEOUS [None]
  - MICTURITION DISORDER [None]
  - MYOCARDIAL INFARCTION [None]
  - TINNITUS [None]
  - VERTIGO [None]
  - VISUAL DISTURBANCE [None]
  - WRONG TECHNIQUE IN DRUG USAGE PROCESS [None]
